FAERS Safety Report 10052186 (Version 1)
Quarter: 2014Q2

REPORT INFORMATION
  Report Type: Spontaneous
  Country: US (occurrence: None)
  Receive Date: 20140401
  Receipt Date: 20140401
  Transmission Date: 20141212
  Serious: Yes (Other)
  Sender: FDA-Public Use
  Company Number: None

PATIENT
  Age: 67 Year
  Sex: Male

DRUGS (30)
  1. IMBRUVICA 140 MG CAP, 3 CAPS ONCE DAILY JANSSEN [Suspect]
     Route: 048
     Dates: start: 20140127
  2. ANDRODERM 4 MG/24 HR PATCH [Concomitant]
  3. ACITRETIN 17.5 MG CAPSULE [Concomitant]
  4. NORVASC 5 MG TABLET [Concomitant]
  5. BETAMETHASONE DP 0.05% LOT [Concomitant]
  6. BIOTIN POWDER [Concomitant]
  7. CALCIUM 600 + VIT D 200 TAB [Concomitant]
  8. CYMBALTA [Concomitant]
  9. FINASTERIDE 1 MG TABLET [Concomitant]
  10. FISH OIL [Concomitant]
  11. FOLIC ACID (POWDER) SUSP [Concomitant]
  12. HYDROCODON-APAP 7.5-500 [Concomitant]
  13. LUNESTA [Concomitant]
  14. GABAPENTIN [Concomitant]
  15. MAGNESIUM OXIDE [Concomitant]
  16. METOPROLOL [Concomitant]
  17. NEXIUM [Concomitant]
  18. NITRO [Concomitant]
  19. ODANSTERON [Concomitant]
  20. PATANASE [Concomitant]
  21. POTASSIUM CHLORIDE [Concomitant]
  22. PREVASTATIN [Concomitant]
  23. PREDNISONE [Concomitant]
  24. Q-NASAL [Concomitant]
  25. RESTASIS [Concomitant]
  26. TAMSOLUSIN [Concomitant]
  27. TORSEMIDE [Concomitant]
  28. TRAZADONE [Concomitant]
  29. TRIAMCINOLONE [Concomitant]
  30. MORPHINE [Concomitant]

REACTIONS (2)
  - Surgery [None]
  - Therapy cessation [None]
